FAERS Safety Report 21766153 (Version 1)
Quarter: 2022Q4

REPORT INFORMATION
  Report Type: Report from Study
  Country: US (occurrence: US)
  Receive Date: 20221222
  Receipt Date: 20221222
  Transmission Date: 20230112
  Serious: Yes (Other)
  Sender: FDA-Public Use
  Company Number: US-HORIZON THERAPEUTICS-HZN-2022-008418

PATIENT

DRUGS (5)
  1. TEPEZZA [Suspect]
     Active Substance: TEPROTUMUMAB-TRBW
     Indication: Endocrine ophthalmopathy
     Dosage: FIRST INFUSION
     Route: 042
     Dates: start: 20220817
  2. TEPEZZA [Suspect]
     Active Substance: TEPROTUMUMAB-TRBW
     Dosage: FOURTH INFUSION
     Route: 042
     Dates: start: 20221019
  3. TEPEZZA [Suspect]
     Active Substance: TEPROTUMUMAB-TRBW
     Dosage: FIFTH INFUSION
     Route: 042
     Dates: start: 20221109
  4. TEPEZZA [Suspect]
     Active Substance: TEPROTUMUMAB-TRBW
     Dosage: SIXTH INFUSION
     Route: 042
     Dates: start: 20221130
  5. COVID-19 VACCINE [Concomitant]
     Indication: Prophylaxis
     Dosage: BOOSTER DOSE
     Route: 065
     Dates: start: 202211

REACTIONS (7)
  - Diverticulum [Unknown]
  - Muscle spasms [Unknown]
  - Dysgeusia [Unknown]
  - Syncope [Unknown]
  - Myalgia [Unknown]
  - Gait disturbance [Unknown]
  - Pruritus [Unknown]

NARRATIVE: CASE EVENT DATE: 20220101
